FAERS Safety Report 5447561-1 (Version None)
Quarter: 2007Q3

REPORT INFORMATION
  Report Type: 
  Country: None (occurrence: None)
  Receive Date: 20070905
  Receipt Date: 20070824
  Transmission Date: 20080115
  Serious: Yes (Hospitalization)
  Sender: FDA-Public Use
  Company Number: E2020-01551-SPO-BE

PATIENT
  Age: 78 Year
  Sex: Male

DRUGS (14)
  1. ARICEPT [Suspect]
     Indication: DEMENTIA ALZHEIMER'S TYPE
     Dosage: ORAL
     Route: 048
  2. CYCLOSPORINE [Suspect]
  3. LOSARTAN POTASSIUM [Suspect]
  4. PREDNISONE TAB [Concomitant]
  5. WARFARIN SODIUM [Concomitant]
  6. DIGOXIN [Concomitant]
  7. FUROSEMIDE [Concomitant]
  8. LEVOTHYROXINE SODIUM [Concomitant]
  9. GLICLAZIDE (GLICLAZIDE) [Concomitant]
  10. LACTULOSE [Concomitant]
  11. CALCIUM CARBONATE (CALCIUM CARBONATE) [Concomitant]
  12. VITAMIN D [Concomitant]
  13. GINKGO BILOBA (GINKGO BILOBA) [Concomitant]
  14. CLARITHROMYCIN [Concomitant]

REACTIONS (2)
  - DRUG INTERACTION [None]
  - GENERAL PHYSICAL HEALTH DETERIORATION [None]
